FAERS Safety Report 12703152 (Version 3)
Quarter: 2016Q4

REPORT INFORMATION
  Report Type: Spontaneous
  Country: US (occurrence: US)
  Receive Date: 20160831
  Receipt Date: 20161017
  Transmission Date: 20170207
  Serious: No
  Sender: FDA-Public Use
  Company Number: US-GLAXOSMITHKLINE-US2016125712

PATIENT
  Age: 36 Year
  Sex: Female

DRUGS (2)
  1. VOLTAREN [Suspect]
     Active Substance: DICLOFENAC SODIUM
     Indication: FRACTURE
     Dosage: UNK
     Route: 061
     Dates: start: 201412
  2. VOLTAREN [Suspect]
     Active Substance: DICLOFENAC SODIUM
     Indication: JOINT SWELLING

REACTIONS (5)
  - Contusion [Unknown]
  - Bone operation [Not Recovered/Not Resolved]
  - Therapeutic response unexpected [Unknown]
  - Bone graft [Unknown]
  - Off label use [Unknown]

NARRATIVE: CASE EVENT DATE: 201502
